FAERS Safety Report 4547172-6 (Version None)
Quarter: 2005Q1

REPORT INFORMATION
  Report Type: 
  Country: None (occurrence: None)
  Receive Date: 20050107
  Receipt Date: 20041203
  Transmission Date: 20050727
  Serious: Yes (Hospitalization)
  Sender: FDA-Public Use
  Company Number: 200510139GDDC

PATIENT
  Age: 81 Year
  Sex: Female
  Weight: 75 kg

DRUGS (9)
  1. ENOXAPARIN SODIUM [Suspect]
     Indication: THROMBOSIS PROPHYLAXIS
     Dosage: DOSE: 2 DOSES OF 40MG EACH
  2. CLOPIDOGREL [Suspect]
     Indication: MYOCARDIAL ISCHAEMIA
  3. CORVATON [Concomitant]
     Dosage: DOSE: UNK
  4. ARELIX ACE [Concomitant]
     Dosage: DOSE: UNK
  5. FURORESE [Concomitant]
     Dosage: DOSE: UNK
  6. BELOC ZOK [Concomitant]
     Dosage: DOSE: UNK
  7. AQUAPHOR TABLET [Concomitant]
     Dosage: DOSE: UNK
  8. INSULIN (NOS) [Concomitant]
     Indication: DIABETES MELLITUS INSULIN-DEPENDENT
     Dosage: DOSE: UNK
     Route: 058
  9. SPIRONOLACTONE [Concomitant]
     Dosage: DOSE: UNK

REACTIONS (8)
  - ACTIVATED PARTIAL THROMBOPLASTIN TIME PROLONGED [None]
  - ASTHENIA [None]
  - ATONIC URINARY BLADDER [None]
  - DYSURIA [None]
  - EXTRADURAL HAEMATOMA [None]
  - HYPOAESTHESIA [None]
  - PARAPLEGIA [None]
  - SENSORY LOSS [None]
